FAERS Safety Report 4716529-2 (Version None)
Quarter: 2005Q3

REPORT INFORMATION
  Report Type: 
  Country: None (occurrence: None)
  Receive Date: 20050714
  Receipt Date: 20050630
  Transmission Date: 20060218
  Serious: Yes (Other)
  Sender: FDA-Public Use
  Company Number: 2005086551

PATIENT
  Age: 50 Year
  Sex: Female
  Weight: 56.6996 kg

DRUGS (3)
  1. UNISOM [Suspect]
     Indication: APPETITE DISORDER
     Dosage: 20-40 PER WEEK , ORAL
     Route: 048
  2. UNISOM [Suspect]
     Indication: APPETITE DISORDER
     Dosage: 20-40 PER WEEK, ORAL
     Route: 048
     Dates: start: 20040101
  3. DIAZEPAM [Concomitant]

REACTIONS (2)
  - DRUG DEPENDENCE [None]
  - IMPAIRED WORK ABILITY [None]
